FAERS Safety Report 12304539 (Version 2)
Quarter: 2016Q2

REPORT INFORMATION
  Report Type: Report from Study
  Country: US (occurrence: US)
  Receive Date: 20160426
  Receipt Date: 20160517
  Transmission Date: 20160815
  Serious: No
  Sender: FDA-Public Use
  Company Number: US-AMGEN-USASP2016050121

PATIENT
  Age: 51 Year
  Sex: Female

DRUGS (1)
  1. ENBREL [Suspect]
     Active Substance: ETANERCEPT
     Indication: RHEUMATOID ARTHRITIS
     Dosage: UNK, QWK
     Route: 065

REACTIONS (16)
  - Myalgia [Unknown]
  - Rubber sensitivity [Unknown]
  - Injection site discomfort [Unknown]
  - Musculoskeletal pain [Recovered/Resolved]
  - Injection site erythema [Unknown]
  - Injection site pain [Unknown]
  - Injection site reaction [Unknown]
  - Injection site swelling [Recovered/Resolved]
  - Pain [Unknown]
  - Arthralgia [Recovered/Resolved]
  - Pyrexia [Unknown]
  - Injection site mass [Unknown]
  - Injection site inflammation [Recovered/Resolved]
  - Injection site discolouration [Not Recovered/Not Resolved]
  - Injection site warmth [Unknown]
  - Injection site pruritus [Recovered/Resolved]
